FAERS Safety Report 5216515-2 (Version None)
Quarter: 2007Q1

REPORT INFORMATION
  Report Type: 
  Country: None (occurrence: None)
  Receive Date: 20070118
  Receipt Date: 20070104
  Transmission Date: 20070707
  Serious: Yes (Other)
  Sender: FDA-Public Use
  Company Number: S07-SWI-00157-01

PATIENT
  Age: 33 Year
  Sex: Female

DRUGS (4)
  1. CITALOPRAM HYDROBROMIDE [Suspect]
     Indication: CONDUCT DISORDER
     Dates: start: 20050801
  2. CITALOPRAM HYDROBROMIDE [Suspect]
     Indication: DEPRESSION
     Dates: start: 20050801
  3. EFFEXOR [Suspect]
     Indication: CONDUCT DISORDER
     Dosage: 150 MG QD PO
     Route: 048
     Dates: start: 20050101, end: 20050801
  4. EFFEXOR [Suspect]
     Indication: DEPRESSION
     Dosage: 150 MG QD PO
     Route: 048
     Dates: start: 20050101, end: 20050801

REACTIONS (4)
  - DRUG EXPOSURE DURING PREGNANCY [None]
  - POLYHYDRAMNIOS [None]
  - PREGNANCY [None]
  - PREMATURE BABY [None]
